FAERS Safety Report 9106442 (Version 2)
Quarter: 2013Q3

REPORT INFORMATION
  Report Type: Spontaneous
  Country: US (occurrence: US)
  Receive Date: 20130221
  Receipt Date: 20130716
  Transmission Date: 20140515
  Serious: Yes (Hospitalization, Other)
  Sender: FDA-Public Use
  Company Number: US-PFIZER INC-2013061430

PATIENT
  Age: 18 Year
  Sex: Male
  Weight: 20.86 kg

DRUGS (2)
  1. BENEFIX [Suspect]
     Indication: FACTOR IX DEFICIENCY
     Dosage: 50 IU/KG, (ON DEMAND)
     Route: 042
  2. BENEFIX [Suspect]
     Dosage: 60, UNK

REACTIONS (1)
  - Haemorrhage [Recovered/Resolved]
